FAERS Safety Report 7398720-2 (Version None)
Quarter: 2011Q2

REPORT INFORMATION
  Report Type: 
  Country: None (occurrence: None)
  Receive Date: 20110407
  Receipt Date: 20110401
  Transmission Date: 20111010
  Serious: No
  Sender: FDA-Public Use
  Company Number: US-BIOGENIDEC-2011BI012615

PATIENT
  Age: 57 Year
  Sex: Female

DRUGS (1)
  1. TYSABRI [Suspect]
     Indication: MULTIPLE SCLEROSIS
     Route: 042
     Dates: start: 20100805, end: 20110228

REACTIONS (5)
  - TREMOR [None]
  - NEUTRALISING ANTIBODIES [None]
  - CHILLS [None]
  - PAIN IN EXTREMITY [None]
  - MUSCLE SPASMS [None]
